FAERS Safety Report 19656132 (Version 2)
Quarter: 2021Q3

REPORT INFORMATION
  Report Type: Spontaneous
  Country: FR (occurrence: FR)
  Receive Date: 20210804
  Receipt Date: 20210909
  Transmission Date: 20211014
  Serious: Yes (Hospitalization, Other)
  Sender: FDA-Public Use
  Company Number: FR-MYLANLABS-2021M1047187

PATIENT
  Age: 80 Year
  Sex: Male
  Weight: 100 kg

DRUGS (9)
  1. PREDNISONE. [Suspect]
     Active Substance: PREDNISONE
     Indication: GOUT
     Dosage: 20 MILLIGRAM, QD
     Route: 065
  2. TRAMADOL. [Suspect]
     Active Substance: TRAMADOL
     Indication: GOUT
     Dosage: 100 MILLIGRAM, BID
     Route: 065
  3. HYDROXYZINE [Suspect]
     Active Substance: HYDROXYZINE HYDROCHLORIDE
     Indication: AGITATION
     Dosage: 50 MILLIGRAM, BID
     Route: 065
  4. ALFUZOSIN [Suspect]
     Active Substance: ALFUZOSIN
     Indication: PRODUCT USED FOR UNKNOWN INDICATION
     Dosage: 10 MILLIGRAM, QD EVENING
     Route: 065
  5. COLCHICINE;PAPAVER SOMNIFERUM;TIEMONIUM [Suspect]
     Active Substance: COLCHICINE\OPIUM\TIEMONIUM
     Indication: GOUT
     Dosage: 2 MILLIGRAM, QD
     Route: 065
  6. FUROSEMIDE. [Suspect]
     Active Substance: FUROSEMIDE
     Indication: PRODUCT USED FOR UNKNOWN INDICATION
     Dosage: 40 MILLIGRAM, QD
     Route: 005
  7. PARACETAMOL [Suspect]
     Active Substance: ACETAMINOPHEN
     Indication: GOUT
     Dosage: 1 GRAM IF NEEDED (4 G MAX)
     Route: 065
  8. METFORMIN [Suspect]
     Active Substance: METFORMIN HYDROCHLORIDE
     Indication: PRODUCT USED FOR UNKNOWN INDICATION
     Dosage: 500 MILLIGRAM, TID
     Route: 065
  9. IPRATROPIUM [Suspect]
     Active Substance: IPRATROPIUM
     Indication: ACUTE RESPIRATORY FAILURE
     Dosage: 2 DOSAGE FORM, QID (2 INHALATIONS, QID)

REACTIONS (10)
  - Respiratory failure [Unknown]
  - Agitation [Unknown]
  - Asthma [Unknown]
  - Gout [Unknown]
  - Fall [Unknown]
  - Anxiety [Unknown]
  - Contraindicated product administered [Unknown]
  - Cardiac failure [Unknown]
  - Diabetic metabolic decompensation [Unknown]
  - Urinary retention [Unknown]
